FAERS Safety Report 9617587 (Version 1)
Quarter: 2013Q4

REPORT INFORMATION
  Report Type: Spontaneous
  Country: US (occurrence: None)
  Receive Date: 20131009
  Receipt Date: 20131009
  Transmission Date: 20140711
  Serious: Yes (Death, Hospitalization)
  Sender: FDA-Public Use
  Company Number: 2013AP008614

PATIENT
  Age: 64 Year
  Sex: Female

DRUGS (8)
  1. DILTIAZEM XR [Suspect]
     Route: 048
  2. DICLOFENAC [Suspect]
     Route: 048
  3. LAMOTRIGINE TABLETS [Suspect]
     Route: 048
  4. CIPROFLOXACIN [Suspect]
     Route: 048
  5. DESIPRAMINE [Suspect]
     Route: 048
  6. VENLAFAXINE [Suspect]
     Route: 048
  7. HYDROCHLOROTHIAZIDE TABLETS USP, 50 MG (PUREPAC) (HYDROCHLOROTHIAZIDE) [Suspect]
     Route: 048
  8. ARMODAFINIL [Suspect]
     Route: 048

REACTIONS (1)
  - Completed suicide [None]
